FAERS Safety Report 24638079 (Version 1)
Quarter: 2024Q4

REPORT INFORMATION
  Report Type: Spontaneous
  Country: US (occurrence: US)
  Receive Date: 20241119
  Receipt Date: 20241119
  Transmission Date: 20250115
  Serious: Yes (Hospitalization, Other)
  Sender: GLENMARK
  Company Number: US-GLENMARK PHARMACEUTICALS-2024GMK095460

PATIENT

DRUGS (1)
  1. GABAPENTIN [Suspect]
     Active Substance: GABAPENTIN
     Indication: Ill-defined disorder
     Dosage: UNK
     Route: 065

REACTIONS (7)
  - Retinal vein occlusion [Unknown]
  - Thrombosis [Unknown]
  - Disability [Unknown]
  - Blindness unilateral [Unknown]
  - Eye pain [Unknown]
  - Malaise [Unknown]
  - Impaired driving ability [Unknown]
